FAERS Safety Report 15226100 (Version 1)
Quarter: 2018Q3

REPORT INFORMATION
  Report Type: Spontaneous
  Country: US (occurrence: US)
  Receive Date: 20180706
  Receipt Date: 20180706
  Transmission Date: 20181010
  Serious: Yes (Hospitalization)
  Sender: FDA-Public Use
  Company Number: None

PATIENT
  Age: 71 Year
  Sex: Female
  Weight: 67.59 kg

DRUGS (2)
  1. DOXORUBICIN HYDROCHLORIDE. [Suspect]
     Active Substance: DOXORUBICIN HYDROCHLORIDE
     Dates: end: 20180618
  2. CYCLOPHOSPHAMIDE. [Suspect]
     Active Substance: CYCLOPHOSPHAMIDE
     Dates: end: 20180618

REACTIONS (9)
  - Atrial fibrillation [None]
  - Fatigue [None]
  - Blood magnesium decreased [None]
  - Orthostatic hypotension [None]
  - Nausea [None]
  - Dizziness [None]
  - Diarrhoea [None]
  - Pancytopenia [None]
  - Anaemia [None]

NARRATIVE: CASE EVENT DATE: 20180625
